FAERS Safety Report 7824920-0 (Version None)
Quarter: 2011Q4

REPORT INFORMATION
  Report Type: 
  Country: None (occurrence: None)
  Receive Date: 20111019
  Receipt Date: 20110224
  Transmission Date: 20120403
  Serious: No
  Sender: FDA-Public Use
  Company Number: US-BRISTOL-MYERS SQUIBB COMPANY-15567753

PATIENT
  Age: 78 Year
  Sex: Male
  Weight: 84 kg

DRUGS (2)
  1. LIPITOR [Concomitant]
  2. AVALIDE [Suspect]
     Dosage: FOR 7-8 YEARS

REACTIONS (1)
  - DYSPHAGIA [None]
